FAERS Safety Report 21193514 (Version 3)
Quarter: 2022Q4

REPORT INFORMATION
  Report Type: Report from Study
  Country: US (occurrence: US)
  Receive Date: 20220810
  Receipt Date: 20221122
  Transmission Date: 20230112
  Serious: Yes (Other)
  Sender: FDA-Public Use
  Company Number: US-BRISTOL-MYERS SQUIBB COMPANY-2022-085477

PATIENT
  Age: 55 Year
  Sex: Female
  Weight: 86.18 kg

DRUGS (2)
  1. REVLIMID [Suspect]
     Active Substance: LENALIDOMIDE
     Indication: Plasma cell myeloma
     Dosage: DAILY 21 DAYS, 7 DAYS OFF?A3663A- 31-MAY-2024?A3689A- 30-JUN-2024
     Route: 048
     Dates: start: 201804, end: 2022
  2. REVLIMID [Suspect]
     Active Substance: LENALIDOMIDE
     Dosage: DAILY 21 OF 28 DAYS
     Route: 048

REACTIONS (5)
  - Headache [Unknown]
  - COVID-19 [Recovered/Resolved]
  - Lactose intolerance [Unknown]
  - Condition aggravated [Unknown]
  - Diarrhoea [Recovering/Resolving]

NARRATIVE: CASE EVENT DATE: 20210101
